FAERS Safety Report 6119451-2 (Version None)
Quarter: 2009Q1

REPORT INFORMATION
  Report Type: 
  Country: None (occurrence: None)
  Receive Date: 20090316
  Receipt Date: 20090306
  Transmission Date: 20090719
  Serious: Yes (Hospitalization)
  Sender: FDA-Public Use
  Company Number: A0773108A

PATIENT
  Age: 49 Year
  Sex: Female
  Weight: 90.9 kg

DRUGS (7)
  1. AVANDIA [Suspect]
     Dosage: 8MG PER DAY
     Route: 048
     Dates: start: 20061001, end: 20070917
  2. LISINOPRIL [Concomitant]
  3. PIROXICAM [Concomitant]
  4. PRILOSEC [Concomitant]
  5. NORVASC [Concomitant]
  6. ENALAPRIL [Concomitant]
  7. LORATADINE [Concomitant]

REACTIONS (6)
  - BALANCE DISORDER [None]
  - CEREBROVASCULAR ACCIDENT [None]
  - HEMIPARESIS [None]
  - INFLAMMATION [None]
  - OEDEMA PERIPHERAL [None]
  - PALPITATIONS [None]
